FAERS Safety Report 17449189 (Version 1)
Quarter: 2020Q1

REPORT INFORMATION
  Report Type: Spontaneous
  Country: ES (occurrence: ES)
  Receive Date: 20200224
  Receipt Date: 20200224
  Transmission Date: 20200409
  Serious: Yes (Hospitalization)
  Sender: FDA-Public Use
  Company Number: ES-TEVA-2020-ES-1189642

PATIENT
  Age: 26 Year
  Sex: Female

DRUGS (5)
  1. MICOFENOLATO DE MOFETILO (7330LM) [Suspect]
     Active Substance: MYCOPHENOLATE MOFETIL
     Indication: SYSTEMIC LUPUS ERYTHEMATOSUS
     Route: 048
     Dates: start: 2014
  2. TACROLIMUS (2694A) [Interacting]
     Active Substance: TACROLIMUS
     Indication: SYSTEMIC LUPUS ERYTHEMATOSUS
     Dosage: 1MG
     Route: 048
     Dates: start: 2015
  3. PREDNISONA (886A) [Interacting]
     Active Substance: PREDNISONE
     Indication: SYSTEMIC LUPUS ERYTHEMATOSUS
     Dosage: 2.5MG
     Route: 048
     Dates: start: 2010
  4. RITUXIMAB (2814A) [Interacting]
     Active Substance: RITUXIMAB
     Indication: SYSTEMIC LUPUS ERYTHEMATOSUS
     Dosage: 1 GRAM
     Route: 048
     Dates: start: 20171127
  5. HIDROXICLOROQUINA SULFATO (2143SU) [Concomitant]
     Indication: SYSTEMIC LUPUS ERYTHEMATOSUS
     Dosage: 200MG
     Route: 048
     Dates: start: 2016

REACTIONS (3)
  - Drug interaction [Unknown]
  - Pneumonia pneumococcal [Recovered/Resolved]
  - Influenza [Recovered/Resolved]

NARRATIVE: CASE EVENT DATE: 20190206
